FAERS Safety Report 12893748 (Version 1)
Quarter: 2016Q4

REPORT INFORMATION
  Report Type: Spontaneous
  Country: US (occurrence: US)
  Receive Date: 20161028
  Receipt Date: 20161028
  Transmission Date: 20170207
  Serious: No
  Sender: FDA-Public Use
  Company Number: US-GLAXOSMITHKLINE-US2016GSK158898

PATIENT
  Sex: Female

DRUGS (5)
  1. NEXIUM [Concomitant]
     Active Substance: ESOMEPRAZOLE MAGNESIUM
  2. ADVAIR HFA [Suspect]
     Active Substance: FLUTICASONE PROPIONATE\SALMETEROL XINAFOATE
     Indication: ASTHMA
     Dosage: UNK, U
  3. PREDNISONE. [Concomitant]
     Active Substance: PREDNISONE
  4. PEPCID [Concomitant]
     Active Substance: FAMOTIDINE
  5. NUCALA [Suspect]
     Active Substance: MEPOLIZUMAB
     Indication: ASTHMA
     Dosage: 1 DF, UNK
     Route: 058
     Dates: start: 20160509

REACTIONS (3)
  - Drug effect decreased [Unknown]
  - Productive cough [Unknown]
  - Asthma [Unknown]
